FAERS Safety Report 8844377 (Version 4)
Quarter: 2013Q1

REPORT INFORMATION
  Report Type: Spontaneous
  Country: JP (occurrence: JP)
  Receive Date: 20121017
  Receipt Date: 20130207
  Transmission Date: 20140127
  Serious: Yes (Other)
  Sender: FDA-Public Use
  Company Number: JP-UCBSA-068812

PATIENT
  Age: 59 Year
  Sex: Female

DRUGS (3)
  1. XYZAL [Suspect]
     Indication: URTICARIA CHRONIC
     Route: 048
     Dates: start: 20120915, end: 20120915
  2. XYZAL [Suspect]
     Indication: URTICARIA CHRONIC
     Route: 048
     Dates: start: 20121001, end: 20121001
  3. MUCOSTA [Concomitant]
     Indication: GASTRITIS
     Route: 048
     Dates: start: 20121001

REACTIONS (5)
  - Erythema multiforme [Recovered/Resolved]
  - Generalised erythema [Unknown]
  - Drug eruption [Unknown]
  - Pruritus generalised [Unknown]
  - Pyrexia [Unknown]
